FAERS Safety Report 6700159-7 (Version None)
Quarter: 2010Q2

REPORT INFORMATION
  Report Type: 
  Country: None (occurrence: None)
  Receive Date: 20100428
  Receipt Date: 20100409
  Transmission Date: 20101027
  Serious: No
  Sender: FDA-Public Use
  Company Number: US-B.I. PHARMACEUTICALS,INC./RIDGEFIELD-2010-BP-04041BP

PATIENT
  Age: 82 Year
  Sex: Male

DRUGS (3)
  1. MIRAPEX [Suspect]
     Indication: RESTLESS LEGS SYNDROME
     Route: 048
     Dates: start: 20100401
  2. OTC VITAMINS [Concomitant]
  3. BIPAP [Concomitant]
     Indication: SLEEP APNOEA SYNDROME

REACTIONS (2)
  - DRUG EFFECT DECREASED [None]
  - SLEEP DISORDER [None]
